FAERS Safety Report 13377077 (Version 1)
Quarter: 2017Q1

REPORT INFORMATION
  Report Type: Report from Study
  Country: JP (occurrence: JP)
  Receive Date: 20170328
  Receipt Date: 20170328
  Transmission Date: 20170429
  Serious: Yes (Other)
  Sender: FDA-Public Use
  Company Number: JP-UCBSA-2017010913

PATIENT
  Age: 60 Year
  Sex: Female
  Weight: 19 kg

DRUGS (3)
  1. LEVETIRACETAM. [Suspect]
     Active Substance: LEVETIRACETAM
     Indication: COMPLEX PARTIAL SEIZURES
     Dosage: 500 MG, ONCE DAILY (QD)
     Route: 041
     Dates: start: 20160203
  2. E KEPPRA [Suspect]
     Active Substance: LEVETIRACETAM
     Indication: COMPLEX PARTIAL SEIZURES
     Dosage: 1000 MG, DAILY (IN 3 DIVIDED DOSES)
     Route: 048
     Dates: start: 20160120, end: 20160129
  3. E KEPPRA [Suspect]
     Active Substance: LEVETIRACETAM
     Dosage: 2000 MG, DAILY (IN 3 DIVIDED DOSES)
     Route: 048
     Dates: start: 20160130, end: 20160203

REACTIONS (2)
  - Inappropriate schedule of drug administration [Unknown]
  - Seizure cluster [Unknown]

NARRATIVE: CASE EVENT DATE: 20160120
